FAERS Safety Report 12663227 (Version 1)
Quarter: 2016Q3

REPORT INFORMATION
  Report Type: Spontaneous
  Country: US (occurrence: None)
  Receive Date: 20160817
  Receipt Date: 20160817
  Transmission Date: 20161109
  Serious: Yes (Life-Threatening, Hospitalization, Disabling, Other)
  Sender: FDA-Public Use
  Company Number: None

PATIENT
  Age: 21 Year
  Sex: Female
  Weight: 56.7 kg

DRUGS (3)
  1. GENERESS FE [Concomitant]
     Active Substance: ETHINYL ESTRADIOL\FERROUS FUMARATE\NORETHINDRONE
  2. EPINEPHRINE. [Suspect]
     Active Substance: EPINEPHRINE
     Indication: FOOD ALLERGY
     Dates: start: 20160518, end: 20160518
  3. EPINEPHRINE. [Suspect]
     Active Substance: EPINEPHRINE
     Indication: THROAT IRRITATION
     Dates: start: 20160518, end: 20160518

REACTIONS (7)
  - Vomiting [None]
  - Blindness [None]
  - Anxiety [None]
  - Apparent death [None]
  - Myocardial infarction [None]
  - Deafness [None]
  - Nausea [None]

NARRATIVE: CASE EVENT DATE: 20160518
